FAERS Safety Report 23369882 (Version 1)
Quarter: 2024Q1

REPORT INFORMATION
  Report Type: Spontaneous
  Country: US (occurrence: US)
  Receive Date: 20240105
  Receipt Date: 20240105
  Transmission Date: 20240410
  Serious: Yes (Hospitalization)
  Sender: FDA-Public Use
  Company Number: US-PERRIGO-23US015026

PATIENT
  Sex: Male

DRUGS (1)
  1. ACETAMINOPHEN\DEXTROMETHORPHAN HYDROBROMIDE\DOXYLAMINE SUCCINATE [Suspect]
     Active Substance: ACETAMINOPHEN\DEXTROMETHORPHAN HYDROBROMIDE\DOXYLAMINE SUCCINATE
     Indication: Influenza
     Dosage: UNKNOWN, UNKNOWN
     Route: 048

REACTIONS (6)
  - Renal impairment [Unknown]
  - Pneumonia [Unknown]
  - Liver injury [Unknown]
  - Drug ineffective [Unknown]
  - Illness [Unknown]
  - Fatigue [Unknown]
